FAERS Safety Report 25131471 (Version 1)
Quarter: 2025Q1

REPORT INFORMATION
  Report Type: Spontaneous
  Country: US (occurrence: US)
  Receive Date: 20250327
  Receipt Date: 20250327
  Transmission Date: 20250409
  Serious: No
  Sender: SANOFI AVENTIS
  Company Number: US-SA-2025SA089154

PATIENT
  Sex: Female
  Weight: 99.55 kg

DRUGS (14)
  1. DUPIXENT [Suspect]
     Active Substance: DUPILUMAB
     Indication: Neurodermatitis
     Dosage: 300 MG, QOW
     Route: 058
  2. WINLEVI [Concomitant]
     Active Substance: CLASCOTERONE
  3. BENZONATATE [Concomitant]
     Active Substance: BENZONATATE
  4. AZITHROMYCIN [Concomitant]
     Active Substance: AZITHROMYCIN
  5. PAXLOVID [Concomitant]
     Active Substance: NIRMATRELVIR\RITONAVIR
  6. TRULANCE [Concomitant]
     Active Substance: PLECANATIDE
  7. GABAPENTIN [Concomitant]
     Active Substance: GABAPENTIN
  8. AZELAIC ACID [Concomitant]
     Active Substance: AZELAIC ACID
  9. SPIRONOLACTONE [Concomitant]
     Active Substance: SPIRONOLACTONE
  10. ROSUVASTATIN CALCIUM [Concomitant]
     Active Substance: ROSUVASTATIN CALCIUM
  11. AMZEEQ [Concomitant]
     Active Substance: MINOCYCLINE HYDROCHLORIDE
  12. NYSTATIN [Concomitant]
     Active Substance: NYSTATIN
  13. FLUTICASONE PROPIONATE [Concomitant]
     Active Substance: FLUTICASONE PROPIONATE
  14. ADAPALENE [Concomitant]
     Active Substance: ADAPALENE

REACTIONS (1)
  - COVID-19 [Unknown]
